FAERS Safety Report 8547125 (Version 11)
Quarter: 2014Q2

REPORT INFORMATION
  Report Type: Report from Study
  Country: FR (occurrence: FR)
  Receive Date: 20120504
  Receipt Date: 20140611
  Transmission Date: 20141212
  Serious: Yes (Other)
  Sender: FDA-Public Use
  Company Number: FR-ROCHE-1063200

PATIENT
  Age: 90 Year
  Sex: Female
  Weight: 48 kg

DRUGS (15)
  1. VISMODEGIB [Suspect]
     Indication: BASAL CELL CARCINOMA
     Dosage: LAST DOSE PRIOR TO SAE 22/APR/2012, TEMPORARILY INTERRUPTED
     Route: 048
     Dates: start: 20120127, end: 20120423
  2. GAVISCON (FRANCE) [Concomitant]
     Indication: PROPHYLAXIS
     Route: 065
     Dates: start: 20110711
  3. GAVISCON (FRANCE) [Concomitant]
     Indication: GASTROOESOPHAGEAL REFLUX DISEASE
  4. DOLIPRANE [Concomitant]
     Indication: CHEST PAIN
     Route: 065
     Dates: start: 20110711
  5. CONTRAMAL [Concomitant]
     Indication: CHEST PAIN
     Route: 065
     Dates: start: 20110711
  6. MACROGOL [Concomitant]
     Indication: PROPHYLAXIS
     Route: 065
     Dates: start: 20110711
  7. AMLOR [Concomitant]
     Indication: MYOCARDIAL ISCHAEMIA
     Route: 065
     Dates: start: 20110711
  8. PERINDOPRIL [Concomitant]
     Indication: MYOCARDIAL ISCHAEMIA
     Route: 065
     Dates: start: 20110711
  9. STABLON [Concomitant]
     Indication: DEPRESSION
     Route: 065
     Dates: start: 20110711
  10. SERESTA [Concomitant]
     Indication: DEPRESSION
     Route: 065
     Dates: start: 20110711
  11. KARDEGIC [Concomitant]
     Indication: TRANSIENT ISCHAEMIC ATTACK
     Route: 065
     Dates: start: 20110711
  12. KARDEGIC [Concomitant]
     Route: 065
     Dates: start: 20110711
  13. LAMOTRIGINE [Concomitant]
     Indication: COGNITIVE DISORDER
     Route: 065
     Dates: start: 20110711
  14. PLASTENAN [Concomitant]
     Indication: SQUAMOUS CELL CARCINOMA
     Route: 065
     Dates: start: 20120221
  15. EFUDIX [Concomitant]
     Indication: SQUAMOUS CELL CARCINOMA
     Route: 065
     Dates: start: 20120227

REACTIONS (1)
  - Cholestasis [Recovered/Resolved]
